FAERS Safety Report 8863286 (Version 2)
Quarter: 2012Q4

REPORT INFORMATION
  Report Type: 
  Country: JP (occurrence: JP)
  Receive Date: 20121025
  Receipt Date: 20121126
  Transmission Date: 20130627
  Serious: Yes (Hospitalization, Disabling, Other)
  Sender: FDA-Public Use
  Company Number: JP-ROCHE-1083580

PATIENT
  Age: 62 Year
  Sex: Female
  Weight: 49 kg

DRUGS (6)
  1. XELODA [Suspect]
     Indication: BREAST CANCER METASTATIC
     Dosage: 3 weeks administration followed by 1 week rest
     Route: 048
     Dates: start: 20110812, end: 20120622
  2. HERCEPTIN [Suspect]
     Indication: BREAST CANCER METASTATIC
     Dosage: Dosage is uncertain.
     Route: 041
     Dates: start: 20110311, end: 20110311
  3. HERCEPTIN [Suspect]
     Indication: BREAST CANCER METASTATIC
     Dosage: Dosage is uncertain.
     Route: 041
     Dates: start: 20110401
  4. PREDONINE [Suspect]
     Indication: PALMAR-PLANTAR ERYTHRODYSAESTHESIA SYNDROME
     Route: 048
  5. AROMASIN [Concomitant]
     Indication: BREAST CANCER METASTATIC
     Route: 048
     Dates: start: 20101130, end: 20120623
  6. NAVELBINE [Concomitant]
     Indication: BREAST CANCER METASTATIC
     Dosage: Uncertain dosage and five time administering
     Route: 041
     Dates: start: 20110623, end: 20110805

REACTIONS (6)
  - Arthritis bacterial [Recovered/Resolved with Sequelae]
  - Palmar-plantar erythrodysaesthesia syndrome [Recovering/Resolving]
  - Subcutaneous abscess [Recovered/Resolved]
  - Oral candidiasis [Unknown]
  - Skin candida [Unknown]
  - Diabetes mellitus [Unknown]
